FAERS Safety Report 21143822 (Version 1)
Quarter: 2022Q3

REPORT INFORMATION
  Report Type: Spontaneous
  Country: US (occurrence: None)
  Receive Date: 20220726
  Receipt Date: 20220726
  Transmission Date: 20221026
  Serious: Yes (Disabling)
  Sender: FDA-Public Use
  Company Number: None

PATIENT
  Age: 39 Year
  Sex: Male
  Weight: 81 kg

DRUGS (4)
  1. SILDENAFIL [Suspect]
     Active Substance: SILDENAFIL
     Indication: Erectile dysfunction
     Dosage: FREQUENCY : DAILY;?
     Route: 048
     Dates: start: 20190701
  2. UNSPECIFIED INGREDIENT [Concomitant]
     Active Substance: UNSPECIFIED INGREDIENT
  3. TADALAFIL [Suspect]
     Active Substance: TADALAFIL
  4. VARDENAFIL [Suspect]
     Active Substance: VARDENAFIL HYDROCHLORIDE

REACTIONS (3)
  - Blood pressure decreased [None]
  - Chest pain [None]
  - Anger [None]

NARRATIVE: CASE EVENT DATE: 20190901
